FAERS Safety Report 4664924-2 (Version None)
Quarter: 2005Q2

REPORT INFORMATION
  Report Type: 
  Country: None (occurrence: None)
  Receive Date: 20050518
  Receipt Date: 20050308
  Transmission Date: 20051028
  Serious: Yes (Life-Threatening)
  Sender: FDA-Public Use
  Company Number: 2005AP01639

PATIENT
  Age: 22679 Day
  Sex: Female

DRUGS (10)
  1. PROPOFOL [Suspect]
     Route: 042
     Dates: start: 20000902, end: 20000903
  2. MIDAZOLAM HCL [Suspect]
     Route: 042
     Dates: start: 20000826, end: 20000905
  3. DIGOXIN [Suspect]
     Indication: CARDIAC DISORDER
     Route: 042
     Dates: start: 20000829, end: 20000905
  4. HALOPERIDOL [Suspect]
     Route: 042
     Dates: start: 20000831, end: 20000904
  5. LOSEC [Concomitant]
  6. CLOTRIMAZOLE [Concomitant]
  7. CLONIDINE [Concomitant]
  8. ACETAMINOPHEN [Concomitant]
  9. NILSTAT [Concomitant]
  10. IMIPENEM [Concomitant]

REACTIONS (3)
  - ELECTROCARDIOGRAM QT PROLONGED [None]
  - TORSADE DE POINTES [None]
  - VENTRICULAR TACHYCARDIA [None]
